FAERS Safety Report 22007901 (Version 1)
Quarter: 2023Q1

REPORT INFORMATION
  Report Type: Report from Study
  Country: FR (occurrence: FR)
  Receive Date: 20230218
  Receipt Date: 20230218
  Transmission Date: 20230417
  Serious: Yes (Death, Hospitalization, Other)
  Sender: FDA-Public Use
  Company Number: FR-Accord-300894

PATIENT

DRUGS (6)
  1. ESCITALOPRAM [Suspect]
     Active Substance: ESCITALOPRAM OXALATE
     Indication: Product used for unknown indication
  2. METOPROLOL [Suspect]
     Active Substance: METOPROLOL
     Indication: Product used for unknown indication
  3. QUININE [Suspect]
     Active Substance: QUININE
     Indication: Product used for unknown indication
  4. FELODIPINE [Suspect]
     Active Substance: FELODIPINE
     Indication: Product used for unknown indication
  5. COLCHICINE [Suspect]
     Active Substance: COLCHICINE
     Indication: Product used for unknown indication
  6. CLORAZEPATE DIPOTASSIUM [Suspect]
     Active Substance: CLORAZEPATE DIPOTASSIUM
     Indication: Product used for unknown indication

REACTIONS (3)
  - Overdose [Fatal]
  - Toxicity to various agents [Fatal]
  - Shock [Fatal]
